FAERS Safety Report 23682987 (Version 1)
Quarter: 2024Q1

REPORT INFORMATION
  Report Type: Spontaneous
  Country: US (occurrence: None)
  Receive Date: 20240327
  Receipt Date: 20240327
  Transmission Date: 20240410
  Serious: Yes (Other)
  Sender: FDA-Public Use
  Company Number: None

PATIENT
  Age: 69 Year
  Sex: Male
  Weight: 74.7 kg

DRUGS (4)
  1. TROSPIUM [Suspect]
     Active Substance: TROSPIUM
  2. phenetoin [Concomitant]
  3. one statin [Concomitant]
  4. VITAMINS [Concomitant]
     Active Substance: VITAMINS

REACTIONS (1)
  - Urethral haemorrhage [None]

NARRATIVE: CASE EVENT DATE: 20240215
